FAERS Safety Report 8657367 (Version 2)
Quarter: 2012Q4

REPORT INFORMATION
  Report Type: 
  Country: US (occurrence: US)
  Receive Date: 20120710
  Receipt Date: 20121017
  Transmission Date: 20130627
  Serious: No
  Sender: FDA-Public Use
  Company Number: US-BIOGENIDEC-2012BI023490

PATIENT
  Age: 57 None
  Sex: Male

DRUGS (1)
  1. AVONEX [Suspect]
     Indication: MULTIPLE SCLEROSIS
     Route: 030
     Dates: start: 20031023

REACTIONS (3)
  - Fear of needles [Not Recovered/Not Resolved]
  - Balance disorder [Recovered/Resolved]
  - Pain in extremity [Recovered/Resolved]
